FAERS Safety Report 14801367 (Version 2)
Quarter: 2018Q2

REPORT INFORMATION
  Report Type: Spontaneous
  Country: DE (occurrence: DE)
  Receive Date: 20180424
  Receipt Date: 20180528
  Transmission Date: 20180711
  Serious: Yes (Other)
  Sender: FDA-Public Use
  Company Number: DE-ROCHE-2111855

PATIENT
  Sex: Female

DRUGS (1)
  1. HERCEPTIN [Suspect]
     Active Substance: TRASTUZUMAB
     Indication: BREAST CANCER
     Route: 065

REACTIONS (6)
  - Cardiac failure [Unknown]
  - Unevaluable event [Unknown]
  - Fatigue [Unknown]
  - Pulmonary oedema [Unknown]
  - Dyspnoea [Unknown]
  - Hypotonia [Unknown]
